FAERS Safety Report 4893079-4 (Version None)
Quarter: 2005Q4

REPORT INFORMATION
  Report Type: 
  Country: None (occurrence: None)
  Receive Date: 20051220
  Receipt Date: 20050720
  Transmission Date: 20060501
  Serious: Yes (Hospitalization)
  Sender: FDA-Public Use
  Company Number: PHEH2001US06877

PATIENT
  Age: 66 Year
  Sex: Male
  Weight: 86.6 kg

DRUGS (9)
  1. AREDIA [Suspect]
     Indication: MULTIPLE MYELOMA
     Dosage: 90 MG, INTRAVENOUS
     Route: 042
     Dates: start: 20010802, end: 20050701
  2. ZESTRIL [Concomitant]
  3. VOLMAX [Concomitant]
  4. HYTRIN [Concomitant]
  5. PULMICORT [Concomitant]
  6. FLOMAX [Concomitant]
  7. HYDROCHLOROTHIAZIDE [Concomitant]
  8. ADVAIR DISKUS 100/50 [Concomitant]
  9. SOLU-MEDROL [Concomitant]

REACTIONS (6)
  - EYE IRRITATION [None]
  - EYE PAIN [None]
  - OCULAR HYPERAEMIA [None]
  - PHOTOPHOBIA [None]
  - PYREXIA [None]
  - UVEITIS [None]
